FAERS Safety Report 21302752 (Version 2)
Quarter: 2022Q3

REPORT INFORMATION
  Report Type: Spontaneous
  Country: AU (occurrence: AU)
  Receive Date: 20220907
  Receipt Date: 20220919
  Transmission Date: 20221027
  Serious: Yes (Hospitalization, Other)
  Sender: FDA-Public Use
  Company Number: AU-PFIZER INC-PV202200046426

PATIENT
  Age: 89 Year
  Sex: Female

DRUGS (2)
  1. LYRICA [Suspect]
     Active Substance: PREGABALIN
     Indication: Neuralgia
     Dosage: UNK
     Dates: start: 2019
  2. LYRICA [Suspect]
     Active Substance: PREGABALIN
     Dosage: EACH NIGHT
     Dates: start: 2022

REACTIONS (7)
  - Pneumonia [Unknown]
  - Fall [Unknown]
  - Weight increased [Unknown]
  - Patella fracture [Unknown]
  - Contusion [Unknown]
  - Rash [Unknown]
  - Overdose [Unknown]

NARRATIVE: CASE EVENT DATE: 20210101
